FAERS Safety Report 6682507-X (Version None)
Quarter: 2010Q2

REPORT INFORMATION
  Report Type: 
  Country: None (occurrence: None)
  Receive Date: 20100415
  Receipt Date: 20100406
  Transmission Date: 20101027
  Serious: Yes (Hospitalization)
  Sender: FDA-Public Use
  Company Number: CA-NOVOPROD-304372

PATIENT
  Sex: Male
  Weight: 64.1 kg

DRUGS (10)
  1. LIRAGLUTIDE FLEXPEN [Suspect]
     Indication: TYPE 2 DIABETES MELLITUS
     Dosage: 1.8 MG, QD
     Route: 058
     Dates: start: 20090610, end: 20100209
  2. INSULIN DETEMIR FLEXPEN [Suspect]
     Indication: TYPE 2 DIABETES MELLITUS
     Dosage: 38.0 U, QD
     Route: 058
     Dates: start: 20090901, end: 20100209
  3. METFORMIN HCL [Concomitant]
     Indication: TYPE 2 DIABETES MELLITUS
     Dosage: 2000 MG, QD
     Route: 048
     Dates: start: 20060101
  4. AMITRIPTYLINE HCL [Concomitant]
     Indication: SLEEP DISORDER
     Dosage: 10 MG, QD
     Route: 048
     Dates: start: 20060101
  5. ADALAT CC [Concomitant]
     Indication: HYPERTENSION
     Dosage: 30 MG, QD
     Route: 048
     Dates: start: 20040801
  6. IRBESARTAN [Concomitant]
     Indication: HYPERTENSION
     Dosage: 300 MG, QD
     Route: 048
     Dates: start: 20090201
  7. PRAVASTATIN [Concomitant]
     Dosage: 40 MG, QD
     Route: 048
     Dates: start: 19990101
  8. EZETROL [Concomitant]
     Indication: LIPIDS
     Dosage: UNK
  9. ASPIRIN [Concomitant]
     Dosage: 81 MG, QD
     Route: 048
  10. SENOKOT [Suspect]
     Indication: CONSTIPATION

REACTIONS (1)
  - CONVULSION [None]
